FAERS Safety Report 13511912 (Version 1)
Quarter: 2017Q2

REPORT INFORMATION
  Report Type: Spontaneous
  Country: ES (occurrence: ES)
  Receive Date: 20170504
  Receipt Date: 20170504
  Transmission Date: 20170830
  Serious: Yes (Hospitalization)
  Sender: FDA-Public Use
  Company Number: ES-ASPEN PHARMA TRADING LIMITED US-AS-2017-003071

PATIENT
  Age: 10 Year
  Sex: Male

DRUGS (8)
  1. MESNA. [Concomitant]
     Active Substance: MESNA
     Indication: LYMPHOCYTIC LEUKAEMIA
     Route: 042
     Dates: start: 20170131, end: 20170131
  2. SEPTRIN FORTE [Concomitant]
     Active Substance: SULFAMETHOXAZOLE\TRIMETHOPRIM
     Indication: PROPHYLAXIS
     Dosage: 160 MG/800 MG
     Route: 048
     Dates: start: 20160705
  3. ONCASPAR [Suspect]
     Active Substance: PEGASPARGASE
     Indication: LYMPHOCYTIC LEUKAEMIA
     Dosage: 750 UI/ML VIAL 5 ML
     Route: 030
     Dates: start: 20170131
  4. ACICLOVIR CINFA [Concomitant]
     Indication: PROPHYLAXIS
     Route: 048
     Dates: start: 20160705
  5. HYDROCORTISONE. [Concomitant]
     Active Substance: HYDROCORTISONE
     Indication: LYMPHOCYTIC LEUKAEMIA
     Route: 048
     Dates: start: 20170124
  6. CYCLOPHOSPHAMIDE. [Suspect]
     Active Substance: CYCLOPHOSPHAMIDE
     Indication: LYMPHOCYTIC LEUKAEMIA
     Route: 042
     Dates: start: 20170131
  7. TIOGUANINE [Suspect]
     Active Substance: THIOGUANINE ANHYDROUS
     Indication: LYMPHOCYTIC LEUKAEMIA
     Route: 048
     Dates: start: 20170131, end: 20170209
  8. VITAMIN D AND ANALOGUES [Concomitant]
     Active Substance: CHOLECALCIFEROL
     Indication: PRODUCT USED FOR UNKNOWN INDICATION
     Route: 048
     Dates: start: 20161115

REACTIONS (4)
  - Epistaxis [Recovered/Resolved]
  - Infection [Recovered/Resolved]
  - Thrombocytopenia [Recovered/Resolved]
  - Agranulocytosis [Recovered/Resolved]

NARRATIVE: CASE EVENT DATE: 20170203
